FAERS Safety Report 7447353-8 (Version None)
Quarter: 2011Q2

REPORT INFORMATION
  Report Type: 
  Country: None (occurrence: None)
  Receive Date: 20110429
  Receipt Date: 20110221
  Transmission Date: 20111010
  Serious: No
  Sender: FDA-Public Use
  Company Number: US-ASTRAZENECA-2011SE09715

PATIENT
  Sex: Male

DRUGS (1)
  1. NEXIUM [Suspect]
     Dosage: TOTAL DAILT DOSE 40MG TWO TIMES A DAY
     Route: 048
     Dates: start: 20110201

REACTIONS (6)
  - CHEST PAIN [None]
  - GASTROOESOPHAGEAL REFLUX DISEASE [None]
  - DYSGEUSIA [None]
  - FLATULENCE [None]
  - NASOPHARYNGITIS [None]
  - HIATUS HERNIA [None]
